FAERS Safety Report 9064652 (Version 1)
Quarter: 2013Q1

REPORT INFORMATION
  Report Type: Spontaneous
  Country: IT (occurrence: IT)
  Receive Date: 20130130
  Receipt Date: 20130130
  Transmission Date: 20140127
  Serious: Yes (Life-Threatening)
  Sender: FDA-Public Use
  Company Number: IT-BAYER-2013-010001

PATIENT
  Age: 74 Year
  Sex: Female

DRUGS (2)
  1. CARDIOASPIRIN [Suspect]
     Indication: PLATELET AGGREGATION INHIBITION
     Dosage: 100 MG, QD
     Route: 048
     Dates: start: 20050101, end: 20120722
  2. TRIATEC [Concomitant]
     Indication: HYPERTENSION
     Dosage: DAILY DOSE 5 MG
     Route: 048
     Dates: start: 20070101, end: 20120722

REACTIONS (1)
  - Cerebrovascular accident [Unknown]
